FAERS Safety Report 20778428 (Version 2)
Quarter: 2022Q2

REPORT INFORMATION
  Report Type: Spontaneous
  Country: IT (occurrence: IT)
  Receive Date: 20220503
  Receipt Date: 20220510
  Transmission Date: 20220721
  Serious: No
  Sender: FDA-Public Use
  Company Number: None

PATIENT
  Age: 62 Year
  Sex: Male
  Weight: 72 kg

DRUGS (4)
  1. PAXLOVID [Suspect]
     Active Substance: NIRMATRELVIR\RITONAVIR
     Indication: COVID-19 treatment
     Dosage: 600 MG, 1X/DAY
     Route: 048
     Dates: start: 20220414, end: 20220417
  2. CLENIL [BECLOMETASONE DIPROPIONATE] [Concomitant]
     Indication: Asthma
     Dosage: UNK
     Route: 055
  3. CARDURA [Concomitant]
     Active Substance: DOXAZOSIN MESYLATE
     Dosage: 4 MG
     Route: 048
  4. LORAZEPAM [Concomitant]
     Active Substance: LORAZEPAM
     Dosage: 2.5 MG
     Route: 048

REACTIONS (2)
  - Abdominal pain upper [Recovered/Resolved]
  - Incorrect dose administered [Unknown]

NARRATIVE: CASE EVENT DATE: 20220414
